FAERS Safety Report 21761497 (Version 2)
Quarter: 2023Q1

REPORT INFORMATION
  Report Type: Report from Study
  Country: FR (occurrence: FR)
  Receive Date: 20221221
  Receipt Date: 20230109
  Transmission Date: 20230418
  Serious: Yes (Hospitalization)
  Sender: FDA-Public Use
  Company Number: FR-ABBVIE-4244555

PATIENT
  Age: 81 Year
  Sex: Male

DRUGS (2)
  1. CARBIDOPA\LEVODOPA [Suspect]
     Active Substance: CARBIDOPA\LEVODOPA
     Indication: Parkinson^s disease
     Route: 050
     Dates: start: 20210827
  2. CARBIDOPA\LEVODOPA [Suspect]
     Active Substance: CARBIDOPA\LEVODOPA

REACTIONS (5)
  - Joint dislocation [Unknown]
  - Fall [Unknown]
  - Disorientation [Unknown]
  - Off label use [Unknown]
  - Device dislocation [Unknown]

NARRATIVE: CASE EVENT DATE: 20221201
